FAERS Safety Report 11024253 (Version 1)
Quarter: 2015Q2

REPORT INFORMATION
  Report Type: Spontaneous
  Country: US (occurrence: US)
  Receive Date: 20150414
  Receipt Date: 20150414
  Transmission Date: 20150821
  Serious: Yes (Death)
  Sender: FDA-Public Use
  Company Number: US-ROCHE-1563476

PATIENT
  Sex: Male

DRUGS (2)
  1. TRAMADOL [Concomitant]
     Active Substance: TRAMADOL
  2. ERIVEDGE [Suspect]
     Active Substance: VISMODEGIB
     Indication: SKIN CANCER
     Route: 048
     Dates: start: 20131231

REACTIONS (1)
  - Death [Fatal]
